FAERS Safety Report 10717745 (Version 1)
Quarter: 2015Q1

REPORT INFORMATION
  Report Type: Spontaneous
  Country: CN (occurrence: CN)
  Receive Date: 20150116
  Receipt Date: 20150116
  Transmission Date: 20150721
  Serious: Yes (Other)
  Sender: FDA-Public Use
  Company Number: CN-PFIZER INC-2015020021

PATIENT
  Age: 46 Year
  Sex: Male
  Weight: 72 kg

DRUGS (1)
  1. METHYLPREDNISOLONE SODIUM SUCCINATE. [Suspect]
     Active Substance: METHYLPREDNISOLONE SODIUM SUCCINATE
     Indication: GLOMERULONEPHRITIS CHRONIC
     Dosage: 28 MG, 1X/DAY
     Route: 048
     Dates: start: 20140705, end: 20140901

REACTIONS (2)
  - Diabetes mellitus [Recovering/Resolving]
  - Oral infection [Unknown]

NARRATIVE: CASE EVENT DATE: 2014
